FAERS Safety Report 8780523 (Version 1)
Quarter: 2012Q4

REPORT INFORMATION
  Report Type: Spontaneous
  Country: None (occurrence: None)
  Receive Date: 20120829
  Receipt Date: 20120829
  Transmission Date: 20130627
  Serious: Yes (Other)
  Sender: FDA-Public Use
  Company Number: AUR-APL-2012-03617

PATIENT
  Age: 32 Year
  Sex: Female

DRUGS (9)
  1. CITALOPRAM (CITALOPRAM) [Suspect]
     Dosage: (20 mg, 1 in 1 d)
     Route: 048
     Dates: start: 20111004
  2. FLUOXETINE [Suspect]
     Dosage: (60 mg, 1 in 1 d)
     Route: 048
     Dates: start: 20100621, end: 20111004
  3. OMEPRAZOLE [Suspect]
     Dosage: (20 MG, 1 IN 1 D)
     Route: 048
     Dates: start: 20080919
  4. PROPRANOLOL [Suspect]
     Dosage: (20 MG, 1 IN 1 D)
     Route: 048
     Dates: start: 20090505
  5. PROPRANOLOL [Suspect]
     Dosage: (20 MG, 1 IN 1 D)
     Route: 048
     Dates: start: 20090505
  6. CHLORPROMAZINE HYDROCHLORIDE [Suspect]
     Dosage: (25 mg, 1 in 1 d)
     Route: 048
     Dates: start: 20110922
  7. DIHYDROCODEINE [Suspect]
     Dosage: (30 mg, 1 in 1 d)
     Route: 048
     Dates: start: 20100315
  8. SEROQUEL XL [Suspect]
  9. SEROQUEL XL [Suspect]

REACTIONS (2)
  - Pre-eclampsia [None]
  - Maternal exposure during pregnancy [None]
